FAERS Safety Report 18460565 (Version 1)
Quarter: 2020Q4

REPORT INFORMATION
  Report Type: Spontaneous
  Country: US (occurrence: US)
  Receive Date: 20201104
  Receipt Date: 20201104
  Transmission Date: 20210114
  Serious: No
  Sender: FDA-Public Use
  Company Number: US-LUPIN PHARMACEUTICALS INC.-2020-06030

PATIENT
  Sex: Male

DRUGS (13)
  1. METHYLPHENIDATE. [Suspect]
     Active Substance: METHYLPHENIDATE
     Indication: INSOMNIA
     Dosage: 18 MILLIGRAM, OSMOTIC RELEASE ORAL SYSTEM, EXTENDED RELEASE, BOOSTER IMMEDIATE RELEASE IN THE AFTERN
     Route: 065
  2. METHYLPHENIDATE. [Suspect]
     Active Substance: METHYLPHENIDATE
     Indication: IRRITABILITY
     Dosage: INCREASED TO MAXIMUM 45 MILLIGRAM,  OSMOTIC RELEASE ORAL SYSTEM, EXTENDED RELEASE
     Route: 065
  3. METHYLPHENIDATE. [Suspect]
     Active Substance: METHYLPHENIDATE
     Dosage: 27 MILLIGRAM, UNK (LOWER DOSE, INTRODUCED)
     Route: 065
  4. CEFDINIR. [Suspect]
     Active Substance: CEFDINIR
     Indication: PRODUCT USED FOR UNKNOWN INDICATION
     Dosage: UNK
     Route: 065
  5. CLONIDINE. [Suspect]
     Active Substance: CLONIDINE
     Indication: IRRITABILITY
     Dosage: 0.1 MILLIGRAM, BID
     Route: 065
  6. LISDEXAMFETAMINE [Concomitant]
     Active Substance: LISDEXAMFETAMINE
     Indication: IMPULSIVE BEHAVIOUR
     Dosage: 30 MILLIGRAM, UNK
     Route: 065
  7. CLONIDINE. [Suspect]
     Active Substance: CLONIDINE
     Dosage: 0.1 MILLIGRAM, AT BEDTIME
     Route: 065
  8. LISDEXAMFETAMINE [Concomitant]
     Active Substance: LISDEXAMFETAMINE
     Dosage: UNK (HIGHER DOSE)
     Route: 065
  9. CLONIDINE. [Suspect]
     Active Substance: CLONIDINE
     Indication: INSOMNIA
     Dosage: 0.1 MILLIGRAM, AT BEDTIME
     Route: 065
  10. CLONIDINE. [Suspect]
     Active Substance: CLONIDINE
     Dosage: 0.1 MILLIGRAM, RESTORED
     Route: 065
  11. METHYLPHENIDATE. [Suspect]
     Active Substance: METHYLPHENIDATE
     Dosage: UNK (RESTARTED THE EXTENDED RELEASE)
     Route: 065
  12. DEXTROAMPHET SACCHARAT, AMPHET ASPARTATE, DEXTROAMPHET SULFATE AND AMPHET SULFAT [Concomitant]
     Active Substance: AMPHETAMINE ASPARTATE\AMPHETAMINE SULFATE\DEXTROAMPHETAMINE SACCHARATE\DEXTROAMPHETAMINE SULFATE
     Indication: ATTENTION DEFICIT HYPERACTIVITY DISORDER
     Dosage: UNK, IMMEDIATE RELEASE
     Route: 065
  13. DEXTROAMPHET SACCHARAT, AMPHET ASPARTATE, DEXTROAMPHET SULFATE AND AMPHET SULFAT [Concomitant]
     Active Substance: AMPHETAMINE ASPARTATE\AMPHETAMINE SULFATE\DEXTROAMPHETAMINE SACCHARATE\DEXTROAMPHETAMINE SULFATE
     Dosage: UNK, EXTENDED RELEASE MIXED AMPHETAMINE SALTS 20 MG DAILY WITH A DEXTROAMPHETAMINE/AMPHETAMINE IMMED

REACTIONS (6)
  - Adverse event [Unknown]
  - Drug hypersensitivity [Recovered/Resolved]
  - Irritability [Unknown]
  - Anxiety [Unknown]
  - Impulsive behaviour [Unknown]
  - Peripheral swelling [Recovered/Resolved]
